FAERS Safety Report 9717719 (Version 2)
Quarter: 2013Q4

REPORT INFORMATION
  Report Type: Spontaneous
  Country: AU (occurrence: AU)
  Receive Date: 20131127
  Receipt Date: 20131127
  Transmission Date: 20140711
  Serious: Yes (Disabling, Other)
  Sender: FDA-Public Use
  Company Number: AU-PFIZER INC-2013316802

PATIENT
  Sex: Female

DRUGS (1)
  1. PREGABALIN [Suspect]
     Route: 048

REACTIONS (8)
  - Myopathy [Not Recovered/Not Resolved]
  - Renal pain [Unknown]
  - Fatigue [Unknown]
  - Influenza like illness [Unknown]
  - Arthralgia [Unknown]
  - Asthenia [Unknown]
  - Pyrexia [Unknown]
  - Discomfort [Unknown]
